FAERS Safety Report 18909097 (Version 1)
Quarter: 2021Q1

REPORT INFORMATION
  Report Type: Spontaneous
  Country: US (occurrence: US)
  Receive Date: 20210217
  Receipt Date: 20210217
  Transmission Date: 20210420
  Serious: Yes (Other)
  Sender: FDA-Public Use
  Company Number: None

PATIENT
  Sex: Female

DRUGS (2)
  1. PREVACID [Suspect]
     Active Substance: LANSOPRAZOLE
  2. INDOCIN [Suspect]
     Active Substance: INDOMETHACIN

REACTIONS (4)
  - Dyspnoea [None]
  - Vision blurred [None]
  - Chest pain [None]
  - Dizziness [None]
